FAERS Safety Report 8546411 (Version 3)
Quarter: 2012Q4

REPORT INFORMATION
  Report Type: 
  Country: CA (occurrence: CA)
  Receive Date: 20120504
  Receipt Date: 20121120
  Transmission Date: 20130627
  Serious: Yes (Hospitalization)
  Sender: FDA-Public Use
  Company Number: CA-BRISTOL-MYERS SQUIBB COMPANY-16510356

PATIENT
  Age: 84 Year
  Sex: Female
  Weight: 49 kg

DRUGS (4)
  1. ORENCIA [Suspect]
     Indication: RHEUMATOID ARTHRITIS
     Dosage: last infusion on 28-Mar-2012,28Apr12
Inf:55
     Route: 042
     Dates: start: 20070503
  2. PLAQUENIL [Concomitant]
  3. ARAVA [Concomitant]
  4. ATENOLOL [Concomitant]

REACTIONS (3)
  - Transient ischaemic attack [Recovered/Resolved]
  - Herpes zoster [Recovered/Resolved]
  - Ulcer [Recovering/Resolving]
